FAERS Safety Report 9892113 (Version 1)
Quarter: 2014Q1

REPORT INFORMATION
  Report Type: Report from Study
  Country: US (occurrence: US)
  Receive Date: 20140212
  Receipt Date: 20140212
  Transmission Date: 20141002
  Serious: Yes (Death, Other)
  Sender: FDA-Public Use
  Company Number: US-GLAXOSMITHKLINE-B0968034A

PATIENT
  Sex: Male
  Weight: 113.4 kg

DRUGS (1)
  1. ZANAMIVIR [Suspect]
     Indication: H1N1 INFLUENZA
     Route: 042
     Dates: start: 20131231, end: 20140117

REACTIONS (7)
  - Hypotension [Fatal]
  - Respiratory failure [Fatal]
  - Bone marrow failure [Fatal]
  - Acute respiratory distress syndrome [Fatal]
  - Renal failure acute [Unknown]
  - Pneumococcal sepsis [Unknown]
  - Leukopenia [Unknown]
